FAERS Safety Report 4627742-7 (Version None)
Quarter: 2005Q2

REPORT INFORMATION
  Report Type: 
  Country: None (occurrence: None)
  Receive Date: 20050401
  Receipt Date: 20050322
  Transmission Date: 20051028
  Serious: Yes (Hospitalization, Other)
  Sender: FDA-Public Use
  Company Number: GBWYE532523MAR05

PATIENT
  Age: 67 Year
  Sex: Female

DRUGS (4)
  1. MONOCOR (BISOPROLOL, TABLET, 0) [Suspect]
     Indication: CARDIOVASCULAR DISORDER
  2. BUMETANIDE  (BUMETANIDE, , 0) [Suspect]
     Indication: CARDIOVASCULAR DISORDER
  3. ENALAPRIL (ENALAPRIL , , 0) [Suspect]
     Indication: CARDIOVASCULAR DISORDER
  4. ISOSORBIDE MONONITRATE (ISOSORBIDE MONONITRATE, , 0) [Suspect]
     Indication: CARDIOVASCULAR DISORDER

REACTIONS (10)
  - BLOOD POTASSIUM DECREASED [None]
  - BLOOD POTASSIUM INCREASED [None]
  - BLOOD PRESSURE DIASTOLIC DECREASED [None]
  - BLOOD PRESSURE SYSTOLIC DECREASED [None]
  - BRADYCARDIA [None]
  - COMA [None]
  - DIARRHOEA [None]
  - ELECTROCARDIOGRAM QRS COMPLEX PROLONGED [None]
  - RENAL FAILURE ACUTE [None]
  - SINOATRIAL BLOCK [None]
